FAERS Safety Report 10046011 (Version 2)
Quarter: 2014Q1

REPORT INFORMATION
  Report Type: Spontaneous
  Country: US (occurrence: US)
  Receive Date: 20140330
  Receipt Date: 20140330
  Transmission Date: 20141002
  Serious: No
  Sender: FDA-Public Use
  Company Number: US-009507513-2012SP020742

PATIENT
  Age: 50 Year
  Sex: Female

DRUGS (3)
  1. VICTRELIS [Suspect]
     Indication: HEPATITIS C
     Dosage: 800 MG, TID
     Route: 048
     Dates: start: 20120302, end: 201204
  2. PEGASYS [Suspect]
     Indication: HEPATITIS C
  3. RIBASPHERE [Suspect]
     Indication: HEPATITIS C

REACTIONS (4)
  - Fear [Unknown]
  - Feeling abnormal [Unknown]
  - Headache [Not Recovered/Not Resolved]
  - Fatigue [Not Recovered/Not Resolved]
